FAERS Safety Report 10880658 (Version 3)
Quarter: 2017Q1

REPORT INFORMATION
  Report Type: Report from Study
  Country: BR (occurrence: BR)
  Receive Date: 20150303
  Receipt Date: 20170124
  Transmission Date: 20170428
  Serious: Yes (Hospitalization, Other)
  Sender: FDA-Public Use
  Company Number: BR-ROCHE-1544721

PATIENT
  Sex: Female
  Weight: 52 kg

DRUGS (11)
  1. MABTHERA [Suspect]
     Active Substance: RITUXIMAB
     Route: 042
     Dates: start: 201209
  2. GLIFAGE [Concomitant]
     Active Substance: METFORMIN HYDROCHLORIDE
     Indication: DIABETES MELLITUS
     Route: 065
  3. ACTONEL [Concomitant]
     Active Substance: RISEDRONATE SODIUM
  4. ANGIPRESS (BRAZIL) [Concomitant]
     Indication: HYPERTENSION
     Route: 065
  5. MABTHERA [Suspect]
     Active Substance: RITUXIMAB
     Indication: RHEUMATOID ARTHRITIS
     Route: 042
     Dates: start: 20100901
  6. ATENOLOL. [Concomitant]
     Active Substance: ATENOLOL
     Route: 065
  7. MABTHERA [Suspect]
     Active Substance: RITUXIMAB
     Route: 042
     Dates: start: 201305
  8. MABTHERA [Suspect]
     Active Substance: RITUXIMAB
     Route: 042
     Dates: start: 201201
  9. MABTHERA [Suspect]
     Active Substance: RITUXIMAB
     Route: 042
     Dates: start: 201401
  10. MABTHERA [Suspect]
     Active Substance: RITUXIMAB
     Route: 042
     Dates: start: 201407
  11. MABTHERA [Suspect]
     Active Substance: RITUXIMAB
     Dosage: MOST RECENT INFUSION ON 28/JUN/2016
     Route: 042
     Dates: start: 20160614

REACTIONS (10)
  - Arthritis [Recovering/Resolving]
  - Cartilage atrophy [Recovering/Resolving]
  - Post procedural discomfort [Unknown]
  - Fall [Unknown]
  - Rheumatoid arthritis [Unknown]
  - Haematoma [Unknown]
  - Hypothyroidism [Unknown]
  - Postoperative wound infection [Recovering/Resolving]
  - Haemorrhage [Unknown]
  - Arthropathy [Recovering/Resolving]
